FAERS Safety Report 20871983 (Version 1)
Quarter: 2022Q2

REPORT INFORMATION
  Report Type: Spontaneous
  Country: US (occurrence: None)
  Receive Date: 20220524
  Receipt Date: 20220524
  Transmission Date: 20220721
  Serious: Yes (Death)
  Sender: FDA-Public Use
  Company Number: None

PATIENT
  Age: 51 Year
  Sex: Male

DRUGS (1)
  1. CYCLOSPORINE [Suspect]
     Active Substance: CYCLOSPORINE
     Indication: Organ transplant
     Dosage: OTHER QUANTITY : 0.025 G;?FREQUENCY : DAILY;?
     Route: 048
     Dates: start: 20130930, end: 20220516

REACTIONS (1)
  - Death [None]

NARRATIVE: CASE EVENT DATE: 20220516
